FAERS Safety Report 5234705-X (Version None)
Quarter: 2007Q1

REPORT INFORMATION
  Report Type: 
  Country: None (occurrence: None)
  Receive Date: 20070209
  Receipt Date: 20070130
  Transmission Date: 20070707
  Serious: Yes (Hospitalization, Other)
  Sender: FDA-Public Use
  Company Number: US-ABBOTT-06P-163-0348934-00

PATIENT
  Sex: Female
  Weight: 109 kg

DRUGS (7)
  1. BIAXIN XL [Suspect]
     Indication: LOBAR PNEUMONIA
     Route: 048
     Dates: start: 20061010, end: 20061011
  2. ESTROGEN NOS [Concomitant]
     Indication: HORMONE REPLACEMENT THERAPY
     Dates: start: 20030101
  3. PROPACET 100 [Concomitant]
     Indication: PAIN
  4. LISINOPRIL [Concomitant]
     Indication: DRUG USE FOR UNKNOWN INDICATION
  5. AMOXICILLIN [Concomitant]
     Indication: LOBAR PNEUMONIA
     Route: 048
     Dates: start: 20061011, end: 20061018
  6. CEFOTAXIME SODIUM [Concomitant]
     Indication: ACUTE SINUSITIS
     Route: 030
     Dates: start: 20061010
  7. DEXAMETHASONE TAB [Concomitant]
     Indication: HYPOTENSION
     Route: 030
     Dates: start: 20061010

REACTIONS (30)
  - ABASIA [None]
  - ADVERSE DRUG REACTION [None]
  - ARTHRALGIA [None]
  - ARTHRITIS [None]
  - ASTHENIA [None]
  - BACK PAIN [None]
  - BLOOD PRESSURE INCREASED [None]
  - BREAST PAIN [None]
  - CRYING [None]
  - ERYTHEMA [None]
  - FURUNCLE [None]
  - HAEMATOCRIT DECREASED [None]
  - HAEMOGLOBIN DECREASED [None]
  - HEADACHE [None]
  - JOINT STIFFNESS [None]
  - JOINT SWELLING [None]
  - MUSCULOSKELETAL STIFFNESS [None]
  - MYALGIA [None]
  - NAUSEA [None]
  - NECK PAIN [None]
  - PAIN [None]
  - PAIN IN EXTREMITY [None]
  - PYREXIA [None]
  - RASH ERYTHEMATOUS [None]
  - RASH MACULAR [None]
  - SINUS DISORDER [None]
  - STAPHYLOCOCCAL INFECTION [None]
  - VIRAL INFECTION [None]
  - VOMITING [None]
  - WEIGHT BEARING DIFFICULTY [None]
